FAERS Safety Report 8525392-3 (Version None)
Quarter: 2012Q3

REPORT INFORMATION
  Report Type: 
  Country: None (occurrence: None)
  Receive Date: 20120710
  Receipt Date: 20120625
  Transmission Date: 20120928
  Serious: Yes (Other)
  Sender: FDA-Public Use
  Company Number: 2012AP001711

PATIENT
  Age: 75 Year
  Sex: Female

DRUGS (1)
  1. LEVOFLOXACIN [Suspect]
     Indication: CYSTITIS HAEMORRHAGIC
     Dosage: 500 MG;BID

REACTIONS (4)
  - PHOTOSENSITIVITY REACTION [None]
  - CAPILLARITIS [None]
  - RASH PRURITIC [None]
  - RASH ERYTHEMATOUS [None]
